FAERS Safety Report 24337392 (Version 1)
Quarter: 2024Q3

REPORT INFORMATION
  Report Type: Spontaneous
  Country: US (occurrence: US)
  Receive Date: 20240919
  Receipt Date: 20240919
  Transmission Date: 20241017
  Serious: Yes (Hospitalization)
  Sender: DR REDDYS
  Company Number: US-DRL-USA-SPO/USA/24/0013591

PATIENT
  Age: 72 Year
  Sex: Male

DRUGS (3)
  1. CLOPIDOGREL [Suspect]
     Active Substance: CLOPIDOGREL BISULFATE
     Indication: Anticoagulant therapy
  2. HEPARIN [Suspect]
     Active Substance: HEPARIN SODIUM
     Indication: Embolism
  3. ASPIRIN [Concomitant]
     Active Substance: ASPIRIN
     Indication: Coagulopathy

REACTIONS (1)
  - Drug ineffective [Unknown]
